FAERS Safety Report 4926966-9 (Version None)
Quarter: 2006Q1

REPORT INFORMATION
  Report Type: 
  Country: None (occurrence: None)
  Receive Date: 20060228
  Receipt Date: 20050923
  Transmission Date: 20060701
  Serious: No
  Sender: FDA-Public Use
  Company Number: US-GLAXOSMITHKLINE-A0575712A

PATIENT
  Age: 28 Year
  Sex: Female

DRUGS (6)
  1. LAMICTAL [Suspect]
     Indication: BIPOLAR DISORDER
     Dosage: 25MG PER DAY
     Route: 048
     Dates: start: 20050831
  2. DEPAKOTE [Concomitant]
  3. ZOLOFT [Concomitant]
  4. ZANTAC [Concomitant]
  5. KLONOPIN [Concomitant]
  6. TRAZODONE [Concomitant]

REACTIONS (1)
  - CONTUSION [None]
